FAERS Safety Report 9129293 (Version 1)
Quarter: 2013Q1

REPORT INFORMATION
  Report Type: Spontaneous
  Country: US (occurrence: US)
  Receive Date: 20130228
  Receipt Date: 20130228
  Transmission Date: 20140127
  Serious: No
  Sender: FDA-Public Use
  Company Number: US-ASTRAZENECA-2013SE10931

PATIENT
  Sex: Female
  Weight: 61.7 kg

DRUGS (10)
  1. NEXIUM [Suspect]
     Indication: GASTROOESOPHAGEAL REFLUX DISEASE
     Route: 048
     Dates: start: 201208
  2. NEXIUM [Suspect]
     Indication: BARRETT^S OESOPHAGUS
     Route: 048
     Dates: start: 201208
  3. NEXIUM [Suspect]
     Indication: GASTROOESOPHAGEAL REFLUX DISEASE
     Route: 048
  4. NEXIUM [Suspect]
     Indication: BARRETT^S OESOPHAGUS
     Route: 048
  5. PRILOSEC [Suspect]
     Indication: GASTROOESOPHAGEAL REFLUX DISEASE
     Route: 048
     Dates: start: 201207, end: 201208
  6. PRILOSEC [Suspect]
     Indication: BARRETT^S OESOPHAGUS
     Route: 048
     Dates: start: 201207, end: 201208
  7. SYNTHROID [Concomitant]
     Indication: HYPOTHYROIDISM
  8. CALCIUM [Concomitant]
  9. VITAMIN D [Concomitant]
  10. VITAMIN [Concomitant]

REACTIONS (3)
  - Back pain [Unknown]
  - Abdominal pain [Unknown]
  - Drug dose omission [Unknown]
